FAERS Safety Report 7275623-5 (Version None)
Quarter: 2011Q1

REPORT INFORMATION
  Report Type: 
  Country: None (occurrence: None)
  Receive Date: 20110204
  Receipt Date: 20110124
  Transmission Date: 20110831
  Serious: Yes (Other)
  Sender: FDA-Public Use
  Company Number: ES-JNJFOC-20110106937

PATIENT
  Age: 45 Year
  Sex: Female

DRUGS (4)
  1. PREDNISONE [Concomitant]
  2. CYCLOPHOSPHAMIDE [Concomitant]
  3. AZATHIOPRINE [Concomitant]
  4. REMICADE [Suspect]
     Indication: CROHN'S DISEASE
     Route: 042

REACTIONS (6)
  - ULCERATIVE KERATITIS [None]
  - CROHN'S DISEASE [None]
  - EYE PENETRATION [None]
  - PYODERMA GANGRENOSUM [None]
  - UVEITIS [None]
  - AMAUROSIS [None]
